FAERS Safety Report 13759616 (Version 1)
Quarter: 2017Q3

REPORT INFORMATION
  Report Type: Spontaneous
  Country: BE (occurrence: BE)
  Receive Date: 20170717
  Receipt Date: 20170717
  Transmission Date: 20171127
  Serious: Yes (Other)
  Sender: FDA-Public Use
  Company Number: BE-TEVA-786218ROM

PATIENT
  Age: 77 Year
  Sex: Male

DRUGS (2)
  1. OMEPRAZOLE. [Suspect]
     Active Substance: OMEPRAZOLE
     Route: 065
  2. FLECAINIDE [Suspect]
     Active Substance: FLECAINIDE
     Route: 065

REACTIONS (1)
  - Lupus-like syndrome [Recovered/Resolved]
